FAERS Safety Report 10618596 (Version 2)
Quarter: 2014Q4

REPORT INFORMATION
  Report Type: Spontaneous
  Country: BR (occurrence: BR)
  Receive Date: 20141202
  Receipt Date: 20141202
  Transmission Date: 20150529
  Serious: Yes (Death)
  Sender: FDA-Public Use
  Company Number: BR-PFIZER INC-2013302818

PATIENT
  Age: 51 Year
  Sex: Female
  Weight: 59 kg

DRUGS (3)
  1. SUTENT [Suspect]
     Active Substance: SUNITINIB MALATE
     Indication: RENAL CELL CARCINOMA
     Dosage: 50 MG, 1X/DAY
     Route: 048
     Dates: start: 20130925, end: 20131025
  2. PROPRANOLOL HYDROCHLORIDE. [Concomitant]
     Active Substance: PROPRANOLOL HYDROCHLORIDE
     Dosage: 40 MG, TWICE A DAY
     Dates: start: 2008
  3. SUTENT [Suspect]
     Active Substance: SUNITINIB MALATE
     Dosage: 37.5 MG, DAILY
     Route: 048

REACTIONS (13)
  - Epistaxis [Unknown]
  - Gait disturbance [Unknown]
  - Death [Fatal]
  - Nausea [Unknown]
  - Skin odour abnormal [Unknown]
  - Swelling [Unknown]
  - Decubitus ulcer [Unknown]
  - Abdominal pain upper [Unknown]
  - Decreased appetite [Unknown]
  - Malaise [Unknown]
  - Pain in extremity [Unknown]
  - Aphthous stomatitis [Unknown]
  - Eyelid oedema [Unknown]

NARRATIVE: CASE EVENT DATE: 2013
